FAERS Safety Report 16714337 (Version 1)
Quarter: 2019Q3

REPORT INFORMATION
  Report Type: Spontaneous
  Country: KR (occurrence: KR)
  Receive Date: 20190819
  Receipt Date: 20190819
  Transmission Date: 20191004
  Serious: Yes (Other)
  Sender: FDA-Public Use
  Company Number: KR-JNJFOC-20190812457

PATIENT
  Sex: Male
  Weight: 78 kg

DRUGS (1)
  1. TYLENOL [Suspect]
     Active Substance: ACETAMINOPHEN
     Indication: OROPHARYNGEAL PAIN
     Dosage: 1 TABLET THE PATIENT DID NOT REMEMBER EXACTLY BUT IT WAS 2 OR 3 TIMES A DAY.
     Route: 048
     Dates: start: 20011215, end: 20021231

REACTIONS (2)
  - Flatulence [Recovered/Resolved]
  - Intestinal haemorrhage [Recovered/Resolved]
